FAERS Safety Report 7790708-2 (Version None)
Quarter: 2011Q3

REPORT INFORMATION
  Report Type: 
  Country: None (occurrence: None)
  Receive Date: 20110930
  Receipt Date: 20110928
  Transmission Date: 20111222
  Serious: Yes (Hospitalization, Other)
  Sender: FDA-Public Use
  Company Number: US-BAYER-2011-065252

PATIENT
  Age: 53 Year
  Sex: Female
  Weight: 63.492 kg

DRUGS (3)
  1. ULTRAVIST 150 [Suspect]
     Indication: COMPUTERISED TOMOGRAM ABDOMEN
     Dosage: 75 ML, ONCE
     Route: 042
     Dates: start: 20110725, end: 20110725
  2. ULTRAVIST 150 [Suspect]
  3. ULTRAVIST 150 [Suspect]
     Indication: ABDOMINAL DISCOMFORT

REACTIONS (9)
  - SWOLLEN TONGUE [None]
  - RESPIRATORY TRACT CONGESTION [None]
  - COUGH [None]
  - DYSPNOEA [None]
  - PHARYNGEAL OEDEMA [None]
  - ERYTHEMA [None]
  - URTICARIA [None]
  - ORAL PRURITUS [None]
  - SNEEZING [None]
